FAERS Safety Report 7659994-3 (Version None)
Quarter: 2011Q3

REPORT INFORMATION
  Report Type: 
  Country: None (occurrence: None)
  Receive Date: 20110805
  Receipt Date: 20110801
  Transmission Date: 20111222
  Serious: Yes (Death, Hospitalization, Other)
  Sender: FDA-Public Use
  Company Number: DE-GENZYME-CAMP-1001502

PATIENT
  Sex: Male
  Weight: 80 kg

DRUGS (6)
  1. FLUCONAZOLE [Concomitant]
     Indication: PRODUCT USED FOR UNKNOWN INDICATION
     Dosage: UNK
     Route: 065
  2. DEXAMETHASONE [Suspect]
     Indication: CHRONIC LYMPHOCYTIC LEUKAEMIA
     Dosage: 40 MG, ON DAYS 1-4 EVERY 2 WEEKS
     Route: 048
     Dates: start: 20110321, end: 20110407
  3. PEGFILGRASTIM [Suspect]
     Indication: NEUTROPENIA
     Dosage: 6 MG, QOW
     Route: 058
     Dates: start: 20110401
  4. ACYCLOVIR [Concomitant]
     Indication: PRODUCT USED FOR UNKNOWN INDICATION
     Dosage: UNK
     Route: 065
  5. COTRIM [Concomitant]
     Indication: PRODUCT USED FOR UNKNOWN INDICATION
     Dosage: UNK
     Route: 065
  6. CAMPATH [Suspect]
     Indication: CHRONIC LYMPHOCYTIC LEUKAEMIA
     Dosage: 30 MG, 3X/W
     Route: 058
     Dates: start: 20110321, end: 20110408

REACTIONS (9)
  - MULTI-ORGAN FAILURE [None]
  - CHILLS [None]
  - MECHANICAL VENTILATION [None]
  - SEPSIS [None]
  - ASTHENIA [None]
  - PNEUMONIA [None]
  - EPSTEIN-BARR VIRAEMIA [None]
  - PYREXIA [None]
  - CYTOMEGALOVIRUS INFECTION [None]
